FAERS Safety Report 14149448 (Version 1)
Quarter: 2017Q4

REPORT INFORMATION
  Report Type: Spontaneous
  Country: US (occurrence: US)
  Receive Date: 20171101
  Receipt Date: 20171101
  Transmission Date: 20180321
  Serious: No
  Sender: FDA-Public Use
  Company Number: None

PATIENT
  Age: 60 Year
  Sex: Female

DRUGS (7)
  1. SUPREP BOWEL PREP [Suspect]
     Active Substance: MAGNESIUM SULFATE\POTASSIUM SULFATE\SODIUM SULFATE
     Indication: BOWEL PREPARATION
     Dosage: ?          QUANTITY:6 OUNCE(S);?
     Route: 048
     Dates: start: 20171030, end: 20171031
  2. FOLIC ACID. [Concomitant]
     Active Substance: FOLIC ACID
  3. OMEPRAZOLE. [Concomitant]
     Active Substance: OMEPRAZOLE
  4. METHOTREXATE INJECTION [Concomitant]
     Active Substance: METHOTREXATE
  5. SUPREP BOWEL PREP [Suspect]
     Active Substance: MAGNESIUM SULFATE\POTASSIUM SULFATE\SODIUM SULFATE
     Indication: COLONOSCOPY
     Dosage: ?          QUANTITY:6 OUNCE(S);?
     Route: 048
     Dates: start: 20171030, end: 20171031
  6. METOPROLOL. [Concomitant]
     Active Substance: METOPROLOL
  7. LEVOTHYROXINE. [Concomitant]
     Active Substance: LEVOTHYROXINE

REACTIONS (7)
  - Nausea [None]
  - Pyrexia [None]
  - Malaise [None]
  - Procedural intestinal perforation [None]
  - Vomiting [None]
  - Product taste abnormal [None]
  - Pain [None]

NARRATIVE: CASE EVENT DATE: 20171031
